FAERS Safety Report 9168850 (Version 1)
Quarter: 2013Q1

REPORT INFORMATION
  Report Type: Spontaneous
  Country: CH (occurrence: CH)
  Receive Date: 20130318
  Receipt Date: 20130318
  Transmission Date: 20140127
  Serious: Yes (Other)
  Sender: FDA-Public Use
  Company Number: CH-JNJFOC-20130305040

PATIENT
  Age: 46 Year
  Sex: Female
  Weight: 70 kg

DRUGS (4)
  1. XARELTO [Suspect]
     Indication: EMBOLISM VENOUS
     Route: 048
     Dates: start: 20121005, end: 20121005
  2. XARELTO [Suspect]
     Indication: PERIPHERAL ARTERY THROMBOSIS
     Route: 048
     Dates: start: 20121005, end: 20121005
  3. XARELTO [Suspect]
     Indication: PERIPHERAL EMBOLISM
     Route: 048
     Dates: start: 20121005, end: 20121005
  4. FRAXIFORTE [Concomitant]
     Route: 065

REACTIONS (3)
  - Nausea [Recovered/Resolved]
  - Headache [Recovered/Resolved]
  - Malaise [Recovered/Resolved]
